FAERS Safety Report 8540951-X (Version None)
Quarter: 2012Q3

REPORT INFORMATION
  Report Type: 
  Country: None (occurrence: None)
  Receive Date: 20120726
  Receipt Date: 20110815
  Transmission Date: 20120928
  Serious: No
  Sender: FDA-Public Use
  Company Number: US-ASTRAZENECA-2011SE48918

PATIENT
  Age: 43 Year
  Sex: Female
  Weight: 67.6 kg

DRUGS (6)
  1. AMITRIPTYLINE HYDROCHLORIDE [Concomitant]
  2. LEVOTHYROXINE SODIUM [Concomitant]
  3. ZOLOFT [Concomitant]
  4. SEROQUEL XR [Suspect]
     Indication: DEPRESSION
     Route: 048
     Dates: start: 20090101, end: 20110801
  5. SEROQUEL XR [Suspect]
     Route: 048
     Dates: start: 20090101, end: 20110801
  6. SEROQUEL XR [Suspect]
     Route: 048
     Dates: start: 20090101, end: 20110801

REACTIONS (5)
  - DEPRESSION [None]
  - MOOD ALTERED [None]
  - CRYING [None]
  - MALAISE [None]
  - DRUG DOSE OMISSION [None]
